FAERS Safety Report 5127733-6 (Version None)
Quarter: 2006Q4

REPORT INFORMATION
  Report Type: 
  Country: None (occurrence: None)
  Receive Date: 20061016
  Receipt Date: 20061012
  Transmission Date: 20070319
  Serious: Yes (Hospitalization)
  Sender: FDA-Public Use
  Company Number: BE-GLAXOSMITHKLINE-B0442020A

PATIENT
  Age: 80 Year
  Sex: Male

DRUGS (8)
  1. REQUIP [Suspect]
     Indication: PARKINSON'S DISEASE
     Route: 048
  2. BISOPROLOL FUMARATE [Concomitant]
  3. AMIODARONE HCL [Concomitant]
  4. PRAVASTATIN [Concomitant]
  5. ASPIRIN [Concomitant]
  6. DIPYRIDAMOL [Concomitant]
  7. LISINOPRIL [Concomitant]
  8. CARBAMAZEPINE [Concomitant]

REACTIONS (3)
  - COLON CANCER [None]
  - INTESTINAL DILATATION [None]
  - VOLVULUS [None]
